FAERS Safety Report 11449049 (Version 3)
Quarter: 2015Q4

REPORT INFORMATION
  Report Type: Report from Study
  Country: US (occurrence: US)
  Receive Date: 20150902
  Receipt Date: 20151027
  Transmission Date: 20160304
  Serious: Yes (Other)
  Sender: FDA-Public Use
  Company Number: US-BAXALTA-2015BLT001417

PATIENT
  Age: 57 Year
  Sex: Female
  Weight: 72.72 kg

DRUGS (4)
  1. BENADRYL [Concomitant]
     Active Substance: DIPHENHYDRAMINE HYDROCHLORIDE
     Indication: PROPHYLAXIS
     Dosage: 25 MG AT BEDTIME AFTER INFUSION
     Route: 048
  2. GAMMAGARD LIQUID [Suspect]
     Active Substance: HUMAN IMMUNOGLOBULIN G
     Indication: PRIMARY IMMUNODEFICIENCY SYNDROME
     Dosage: 8 G, EVERY 10 DY
     Route: 058
     Dates: start: 201405
  3. MOTRIN [Concomitant]
     Active Substance: IBUPROFEN
     Indication: PREMEDICATION
     Dosage: 800 MG 30 MINUTES PRIOR TO INFUSION
     Route: 048
  4. GAMMAGARD LIQUID [Suspect]
     Active Substance: HUMAN IMMUNOGLOBULIN G
     Indication: IMMUNODEFICIENCY COMMON VARIABLE

REACTIONS (1)
  - Pneumonia [Recovered/Resolved]

NARRATIVE: CASE EVENT DATE: 20150825
